FAERS Safety Report 10727671 (Version 3)
Quarter: 2015Q2

REPORT INFORMATION
  Report Type: Spontaneous
  Country: US (occurrence: US)
  Receive Date: 20150121
  Receipt Date: 20150529
  Transmission Date: 20150821
  Serious: Yes (Other)
  Sender: FDA-Public Use
  Company Number: US-ELI_LILLY_AND_COMPANY-US201501003716

PATIENT
  Age: 59 Year
  Sex: Female
  Weight: 119.73 kg

DRUGS (20)
  1. HUMALOG [Suspect]
     Active Substance: INSULIN LISPRO
     Indication: TYPE 2 DIABETES MELLITUS
     Dosage: 12 U, BID
     Route: 065
     Dates: start: 2008
  2. HUMALOG [Suspect]
     Active Substance: INSULIN LISPRO
     Dosage: 17 U, EACH EVENING
     Route: 065
     Dates: start: 2008
  3. CURCUMIN [Concomitant]
     Active Substance: CURCUMIN
     Dosage: UNK, QD
  4. VITAMIN D                          /00107901/ [Concomitant]
     Active Substance: ERGOCALCIFEROL
  5. CINNAMON                           /01647501/ [Concomitant]
     Active Substance: CINNAMON
     Dosage: 1000 MG, QD
  6. ALBUTEROL HFA [Concomitant]
     Active Substance: ALBUTEROL SULFATE
  7. LANTUS [Concomitant]
     Active Substance: INSULIN GLARGINE
  8. LISINOPRIL. [Concomitant]
     Active Substance: LISINOPRIL
  9. CRANBERRY                          /01512301/ [Concomitant]
     Dosage: UNK, QD
  10. METFORMIN [Concomitant]
     Active Substance: METFORMIN HYDROCHLORIDE
  11. HUMALOG [Suspect]
     Active Substance: INSULIN LISPRO
     Dosage: 5 U, PRN
     Route: 065
     Dates: start: 2008
  12. MAGNESIUM [Concomitant]
     Active Substance: MAGNESIUM
     Dosage: 500 MG, QD
  13. HCTZ [Concomitant]
     Active Substance: HYDROCHLOROTHIAZIDE
  14. AMITRIPTYLINE [Concomitant]
     Active Substance: AMITRIPTYLINE
  15. GRAPE SEED                         /01364603/ [Concomitant]
  16. CALCIUM [Concomitant]
     Active Substance: CALCIUM
  17. BABY ASPIRIN [Concomitant]
     Active Substance: ASPIRIN
  18. TURMERIC                           /01079602/ [Concomitant]
     Dosage: UNK, QD
  19. NOVOLOG [Concomitant]
     Active Substance: INSULIN ASPART
  20. FISH OIL [Concomitant]
     Active Substance: FISH OIL

REACTIONS (14)
  - Aptyalism [Not Recovered/Not Resolved]
  - Papillary thyroid cancer [Unknown]
  - Precancerous cells present [Recovered/Resolved]
  - Chronic obstructive pulmonary disease [Not Recovered/Not Resolved]
  - Dry eye [Not Recovered/Not Resolved]
  - BRCA1 gene mutation [Not Recovered/Not Resolved]
  - Hernia [Recovered/Resolved]
  - Pancreatic mass [Not Recovered/Not Resolved]
  - Lacrimation decreased [Not Recovered/Not Resolved]
  - Avulsion fracture [Unknown]
  - Cholelithiasis [Recovered/Resolved]
  - Palpitations [Unknown]
  - Vitamin D decreased [Not Recovered/Not Resolved]
  - Pulmonary mass [Recovered/Resolved]

NARRATIVE: CASE EVENT DATE: 2010
